FAERS Safety Report 17523723 (Version 1)
Quarter: 2020Q1

REPORT INFORMATION
  Report Type: Spontaneous
  Country: US (occurrence: US)
  Receive Date: 20200310
  Receipt Date: 20200310
  Transmission Date: 20200409
  Serious: Yes (Other)
  Sender: FDA-Public Use
  Company Number: US-PFIZER INC-2020065607

PATIENT
  Age: 87 Year
  Sex: Female
  Weight: 48.99 kg

DRUGS (2)
  1. VYNDAQEL [Suspect]
     Active Substance: TAFAMIDIS MEGLUMINE
     Indication: AMYLOIDOSIS
  2. VYNDAQEL [Suspect]
     Active Substance: TAFAMIDIS MEGLUMINE
     Indication: CARDIAC FAILURE CONGESTIVE
     Dosage: 4 DF (80 MG), UNK
     Dates: start: 201908

REACTIONS (2)
  - Product dose omission [Unknown]
  - Dementia [Unknown]

NARRATIVE: CASE EVENT DATE: 20200127
